FAERS Safety Report 4694237-4 (Version None)
Quarter: 2005Q2

REPORT INFORMATION
  Report Type: 
  Country: None (occurrence: None)
  Receive Date: 20050617
  Receipt Date: 20050617
  Transmission Date: 20051028
  Serious: Yes (Hospitalization)
  Sender: FDA-Public Use
  Company Number: None

PATIENT
  Age: 44 Year
  Sex: Female
  Weight: 106 kg

DRUGS (1)
  1. ORTHO NECON     1/35 [Suspect]
     Indication: ORAL CONTRACEPTION

REACTIONS (3)
  - CARDIAC DISORDER [None]
  - DEEP VEIN THROMBOSIS [None]
  - PULMONARY EMBOLISM [None]
